FAERS Safety Report 5486066-9 (Version None)
Quarter: 2007Q4

REPORT INFORMATION
  Report Type: 
  Country: None (occurrence: None)
  Receive Date: 20071015
  Receipt Date: 20071004
  Transmission Date: 20080405
  Serious: Yes (Other)
  Sender: FDA-Public Use
  Company Number: PH-PFIZER INC-2007084449

PATIENT
  Age: 87 Year
  Sex: Male

DRUGS (1)
  1. SULPERAZONE [Suspect]

REACTIONS (1)
  - HAEMATURIA [None]
